FAERS Safety Report 8520963-2 (Version None)
Quarter: 2012Q3

REPORT INFORMATION
  Report Type: 
  Country: None (occurrence: None)
  Receive Date: 20120712
  Receipt Date: 20120712
  Transmission Date: 20120928
  Serious: Yes (Life-Threatening, Hospitalization)
  Sender: FDA-Public Use
  Company Number: None

PATIENT
  Age: 16 Year
  Sex: Male
  Weight: 86 kg

DRUGS (1)
  1. OXYCODONE/ACETAMINOPHEN [Suspect]
     Indication: PROCEDURAL PAIN
     Dosage: PO
     Route: 048
     Dates: start: 20120510, end: 20120510

REACTIONS (4)
  - SWELLING [None]
  - APNOEA [None]
  - UNRESPONSIVE TO STIMULI [None]
  - POST PROCEDURAL COMPLICATION [None]
